FAERS Safety Report 20221770 (Version 1)
Quarter: 2021Q4

REPORT INFORMATION
  Report Type: Spontaneous
  Country: US (occurrence: None)
  Receive Date: 20211222
  Receipt Date: 20211222
  Transmission Date: 20220304
  Serious: Yes (Hospitalization)
  Sender: FDA-Public Use
  Company Number: None

PATIENT
  Age: 67 Year
  Sex: Female

DRUGS (9)
  1. POMALYST [Suspect]
     Active Substance: POMALIDOMIDE
     Indication: Plasma cell myeloma
     Dosage: FREQUENCY : DAILY;?
     Route: 048
     Dates: start: 20190103
  2. POMALYST [Suspect]
     Active Substance: POMALIDOMIDE
  3. ELOTUZUMAB [Concomitant]
     Active Substance: ELOTUZUMAB
  4. ASPIRIN [Concomitant]
     Active Substance: ASPIRIN
  5. COREG [Concomitant]
     Active Substance: CARVEDILOL
  6. LISINOPRIL [Concomitant]
     Active Substance: LISINOPRIL
  7. COUMADIN [Concomitant]
     Active Substance: WARFARIN SODIUM
  8. KEPPRA [Concomitant]
     Active Substance: LEVETIRACETAM
  9. CORTEF [Concomitant]
     Active Substance: HYDROCORTISONE

REACTIONS (6)
  - Ventricular fibrillation [None]
  - Cardiac arrest [None]
  - Acute respiratory failure [None]
  - Hypokinesia [None]
  - Pneumonia [None]
  - Therapy interrupted [None]

NARRATIVE: CASE EVENT DATE: 20211007
